FAERS Safety Report 14381668 (Version 2)
Quarter: 2018Q2

REPORT INFORMATION
  Report Type: Spontaneous
  Country: US (occurrence: US)
  Receive Date: 20180112
  Receipt Date: 20180426
  Transmission Date: 20180711
  Serious: No
  Sender: FDA-Public Use
  Company Number: US-LUNDBECK-DKLU2036298

PATIENT
  Sex: Male
  Weight: 77 kg

DRUGS (3)
  1. NORTHERA [Suspect]
     Active Substance: DROXIDOPA
     Indication: ORTHOSTATIC HYPOTENSION
     Dosage: TITRATION COMPLETE
     Route: 065
     Dates: start: 20150914
  2. NORTHERA [Suspect]
     Active Substance: DROXIDOPA
     Indication: AUTONOMIC NERVOUS SYSTEM IMBALANCE
     Route: 065
     Dates: start: 20150917
  3. NORTHERA [Suspect]
     Active Substance: DROXIDOPA
     Indication: PLASMA CELL MYELOMA

REACTIONS (5)
  - Decreased appetite [Not Recovered/Not Resolved]
  - Neuropathy peripheral [Unknown]
  - Dizziness postural [Unknown]
  - Dysgeusia [Not Recovered/Not Resolved]
  - Crystal urine [Unknown]
